FAERS Safety Report 12769823 (Version 3)
Quarter: 2016Q4

REPORT INFORMATION
  Report Type: Spontaneous
  Country: FR (occurrence: FR)
  Receive Date: 20160922
  Receipt Date: 20161007
  Transmission Date: 20170207
  Serious: Yes (Death, Other)
  Sender: FDA-Public Use
  Company Number: FR-009507513-1609FRA007866

PATIENT
  Age: 43 Year
  Sex: Male
  Weight: 169 kg

DRUGS (4)
  1. ROCURONIUM BROMIDE. [Suspect]
     Active Substance: ROCURONIUM BROMIDE
     Dosage: 100MG, DIRECT IV INJECTION
     Route: 042
     Dates: start: 20160914
  2. REMIFENTANIL HYDROCHLORIDE [Concomitant]
     Active Substance: REMIFENTANIL HYDROCHLORIDE
     Indication: INDUCTION OF ANAESTHESIA
     Dosage: 20 MCG/KG/MIN
     Dates: start: 20160914, end: 20160914
  3. PROPOFOL. [Concomitant]
     Active Substance: PROPOFOL
     Indication: INDUCTION OF ANAESTHESIA
     Dosage: 200 MG, ONCE
     Dates: start: 20160914, end: 20160914
  4. THERAPY UNSPECIFIED [Suspect]
     Active Substance: UNSPECIFIED INGREDIENT

REACTIONS (5)
  - Cardiac arrest [Fatal]
  - Circulatory collapse [Fatal]
  - Rash [Fatal]
  - Anaphylactic shock [Fatal]
  - Bronchospasm [Fatal]

NARRATIVE: CASE EVENT DATE: 20160914
